FAERS Safety Report 6902779-3 (Version None)
Quarter: 2010Q3

REPORT INFORMATION
  Report Type: 
  Country: None (occurrence: None)
  Receive Date: 20100803
  Receipt Date: 20080721
  Transmission Date: 20110219
  Serious: No
  Sender: FDA-Public Use
  Company Number: US-PFIZER INC-2008062237

PATIENT
  Sex: Female
  Weight: 70.3 kg

DRUGS (7)
  1. LYRICA [Suspect]
     Indication: FIBROMYALGIA
     Dates: start: 20080501
  2. REQUIP [Concomitant]
     Indication: RESTLESS LEGS SYNDROME
     Dates: start: 20060101
  3. IBUPROFEN [Concomitant]
     Indication: PAIN
     Dates: start: 20080501
  4. CELEBREX [Concomitant]
     Indication: PAIN
     Dates: start: 20050512
  5. LIPITOR [Concomitant]
     Indication: HYPERCHOLESTEROLAEMIA
     Dates: start: 20060601
  6. VERAPAMIL [Concomitant]
     Indication: HYPERTENSION
     Dates: start: 20040101
  7. ALTACE [Concomitant]

REACTIONS (1)
  - OEDEMA PERIPHERAL [None]
